FAERS Safety Report 8054292-0 (Version None)
Quarter: 2012Q1

REPORT INFORMATION
  Report Type: 
  Country: None (occurrence: None)
  Receive Date: 20120118
  Receipt Date: 20120110
  Transmission Date: 20120608
  Serious: Yes (Hospitalization)
  Sender: FDA-Public Use
  Company Number: PHEH2012US001306

PATIENT
  Sex: Female
  Weight: 63 kg

DRUGS (11)
  1. VALTURNA [Suspect]
     Indication: HYPERTENSION
     Dosage: 1 DF(150/160), QD
     Dates: end: 20120110
  2. DIOVAN [Concomitant]
     Dosage: 160 (UKNOWN UNITS)
  3. IMDUR [Concomitant]
     Dosage: 630 (UNKNOWN UNITS)
  4. VALTURNA [Suspect]
     Dosage: 1 DF (300/320), UNK
     Dates: end: 20120110
  5. VITAMIN D [Concomitant]
     Dosage: 3000 (UNKNOWN UNITS)
  6. BETAPACE [Concomitant]
     Dosage: BID (120 AM, 80 PM)
  7. ASPIRIN [Concomitant]
     Dosage: 81 (UNKNOWN UNITS)
  8. NEXIUM [Concomitant]
     Dosage: 40 (UNKNOWN UNITS)
  9. POTASSIUM CHLORIDE [Concomitant]
     Dosage: 10 (UNKNOWN UNITS)
  10. PLANEX [Concomitant]
     Dosage: 75 (UNKNOWN UNITS)
  11. TEKTURNA [Concomitant]
     Dosage: 300 (UNKOWN UNITS)

REACTIONS (4)
  - CEREBROVASCULAR ACCIDENT [None]
  - FEELING ABNORMAL [None]
  - APHASIA [None]
  - DYSARTHRIA [None]
